FAERS Safety Report 14653480 (Version 1)
Quarter: 2018Q1

REPORT INFORMATION
  Report Type: Report from Study
  Country: None (occurrence: CA)
  Receive Date: 20180319
  Receipt Date: 20180319
  Transmission Date: 20180509
  Serious: Yes (Other)
  Sender: FDA-Public Use
  Company Number: CA-ABBVIE-11P-028-0849557-00

PATIENT
  Age: 64 Year
  Sex: Female
  Weight: 87.1 kg

DRUGS (2)
  1. HUMIRA [Suspect]
     Active Substance: ADALIMUMAB
     Route: 058
     Dates: end: 20180311
  2. HUMIRA [Suspect]
     Active Substance: ADALIMUMAB
     Indication: PSORIASIS
     Route: 058
     Dates: start: 20101004, end: 20121219

REACTIONS (19)
  - Diverticulum [Recovered/Resolved]
  - Ileostomy [Unknown]
  - Postoperative wound infection [Recovering/Resolving]
  - Female genital tract fistula [Recovered/Resolved]
  - Fistula discharge [Recovered/Resolved]
  - Sepsis [Unknown]
  - Ileostomy [Recovering/Resolving]
  - Postoperative wound infection [Not Recovered/Not Resolved]
  - Gastrointestinal pain [Recovering/Resolving]
  - Impaired healing [Recovering/Resolving]
  - Post procedural infection [Unknown]
  - Anastomotic leak [Recovering/Resolving]
  - Coma [Unknown]
  - Impaired healing [Not Recovered/Not Resolved]
  - Intestinal operation [Recovering/Resolving]
  - Impaired healing [Not Recovered/Not Resolved]
  - Diverticulitis [Recovering/Resolving]
  - Cystitis [Recovering/Resolving]
  - Asthenia [Recovering/Resolving]

NARRATIVE: CASE EVENT DATE: 201010
